FAERS Safety Report 9893417 (Version 1)
Quarter: 2014Q1

REPORT INFORMATION
  Report Type: Spontaneous
  Country: US (occurrence: US)
  Receive Date: 20140213
  Receipt Date: 20140213
  Transmission Date: 20141002
  Serious: Yes (Hospitalization)
  Sender: FDA-Public Use
  Company Number: US-PERRIGO-14US001303

PATIENT
  Sex: Female
  Weight: 81.18 kg

DRUGS (9)
  1. NAPROXEN SODIUM 220 MG 368 [Suspect]
     Indication: BACK PAIN
     Dosage: 440 MG, QD
     Route: 048
     Dates: start: 2011, end: 2011
  2. ANALGESICS [Concomitant]
     Indication: BACK PAIN
     Dosage: UNK, UNK
     Route: 065
  3. PROZAC [Concomitant]
     Indication: DEPRESSION
     Dosage: UNK, UNK
     Route: 065
  4. NORTRIPTYLINE [Concomitant]
     Indication: FIBROMYALGIA
     Dosage: UNK, UNK
     Route: 065
  5. OMEPRAZOLE [Concomitant]
     Indication: HIATUS HERNIA
     Dosage: UNK, UNK
     Route: 065
  6. TOPAMAX [Concomitant]
     Indication: CONVULSION
     Dosage: UNK, UNK
     Route: 065
     Dates: start: 2004
  7. ACETAMINOPHEN [Concomitant]
     Indication: PAIN
     Dosage: 1000 MG, BID
     Route: 065
     Dates: start: 20140202
  8. ACETAMINOPHEN [Concomitant]
     Dosage: 500 MG, QHS
     Route: 065
     Dates: start: 201308, end: 20140201
  9. SUCRALFATE [Concomitant]
     Indication: HIATUS HERNIA
     Dosage: UNK, UNK
     Route: 065

REACTIONS (3)
  - Haemorrhage [Recovered/Resolved]
  - Hypopnoea [Recovered/Resolved]
  - Incorrect drug administration duration [Recovered/Resolved]
